FAERS Safety Report 6985880-8 (Version None)
Quarter: 2010Q3

REPORT INFORMATION
  Report Type: 
  Country: None (occurrence: None)
  Receive Date: 20100910
  Receipt Date: 20100823
  Transmission Date: 20110219
  Serious: Yes (Life-Threatening, Hospitalization)
  Sender: FDA-Public Use
  Company Number: 2010-2738

PATIENT
  Age: 62 Year
  Sex: Female

DRUGS (1)
  1. SOMATULINE DEPOT [Suspect]
     Indication: DIARRHOEA
     Dosage: 60 MG, NOT REPORTED, INTRAMUSCULAR
     Route: 030
     Dates: start: 20100709, end: 20100820

REACTIONS (2)
  - APHAGIA [None]
  - RENAL IMPAIRMENT [None]
